FAERS Safety Report 6977536-2 (Version None)
Quarter: 2010Q3

REPORT INFORMATION
  Report Type: 
  Country: None (occurrence: None)
  Receive Date: 20100910
  Receipt Date: 20100902
  Transmission Date: 20110219
  Serious: Yes (Hospitalization)
  Sender: FDA-Public Use
  Company Number: JP-AMGEN-KDC437035

PATIENT
  Sex: Male

DRUGS (16)
  1. REGPARA [Suspect]
     Indication: HYPERPARATHYROIDISM SECONDARY
     Route: 048
     Dates: start: 20090731, end: 20091218
  2. RENAGEL [Concomitant]
     Route: 048
     Dates: end: 20091218
  3. FOSRENOL [Concomitant]
     Route: 048
     Dates: start: 20091104, end: 20091218
  4. CALCIUM CARBONATE [Concomitant]
     Route: 048
     Dates: end: 20091218
  5. MIGLITOL [Concomitant]
     Route: 048
     Dates: end: 20091218
  6. ADALAT CC [Concomitant]
     Route: 048
     Dates: end: 20091217
  7. BLOPRESS [Concomitant]
     Route: 048
     Dates: end: 20091217
  8. ASPIRIN [Concomitant]
     Route: 048
     Dates: end: 20091217
  9. TAKEPRON [Concomitant]
     Route: 048
     Dates: end: 20091217
  10. ALESION [Concomitant]
     Route: 048
     Dates: end: 20091217
  11. LASIX [Concomitant]
     Route: 048
     Dates: end: 20091217
  12. POLYCARBOPHIL CALCIUM [Concomitant]
     Route: 048
     Dates: end: 20091217
  13. LANDSEN [Concomitant]
     Route: 048
     Dates: end: 20091217
  14. SHAKUYAKU-KANZO-TO [Concomitant]
     Route: 048
     Dates: end: 20091217
  15. NESPO [Concomitant]
     Route: 042
     Dates: end: 20091217
  16. TENORMIN [Concomitant]
     Route: 048
     Dates: start: 20090925, end: 20091217

REACTIONS (2)
  - ATRIAL FIBRILLATION [None]
  - GASTROINTESTINAL NECROSIS [None]
